FAERS Safety Report 20560924 (Version 4)
Quarter: 2023Q2

REPORT INFORMATION
  Report Type: Spontaneous
  Country: US (occurrence: US)
  Receive Date: 20220307
  Receipt Date: 20230630
  Transmission Date: 20230722
  Serious: Yes (Hospitalization, Other)
  Sender: FDA-Public Use
  Company Number: US-GW PHARMA-202202USGW01006

PATIENT
  Age: 16 Year
  Sex: Male
  Weight: 80.4 kg

DRUGS (4)
  1. EPIDIOLEX [Suspect]
     Active Substance: CANNABIDIOL
     Indication: Lennox-Gastaut syndrome
     Dosage: 22.39 MG/KG/DAY, 900 MILLIGRAM, BID
     Route: 048
     Dates: start: 202102
  2. EPIDIOLEX [Suspect]
     Active Substance: CANNABIDIOL
     Dosage: 9 MILLILITER, BID
     Route: 048
  3. MYCOPHENOLIC ACID [Concomitant]
     Active Substance: MYCOPHENOLIC ACID
  4. FINTEPLA [Concomitant]
     Active Substance: FENFLURAMINE

REACTIONS (5)
  - Autoimmune encephalopathy [Unknown]
  - Hospitalisation [Recovered/Resolved]
  - Autoimmune disorder [Unknown]
  - Prescribed overdose [Unknown]
  - Circumstance or information capable of leading to medication error [Unknown]

NARRATIVE: CASE EVENT DATE: 20220217
